FAERS Safety Report 8461391-8 (Version None)
Quarter: 2012Q2

REPORT INFORMATION
  Report Type: 
  Country: None (occurrence: None)
  Receive Date: 20120625
  Receipt Date: 20120611
  Transmission Date: 20120825
  Serious: No
  Sender: FDA-Public Use
  Company Number: US-JNJFOC-20120607057

PATIENT
  Sex: Male

DRUGS (5)
  1. INVEGA SUSTENNA [Suspect]
     Indication: PRODUCT USED FOR UNKNOWN INDICATION
     Route: 030
  2. COGENTIN [Concomitant]
     Route: 048
  3. SEROQUEL [Concomitant]
     Route: 048
  4. PROPRANOLOL [Concomitant]
     Route: 048
  5. MELLARIL [Concomitant]
     Route: 048

REACTIONS (3)
  - ACCIDENTAL EXPOSURE [None]
  - DEVICE LEAKAGE [None]
  - UNDERDOSE [None]
